FAERS Safety Report 6376643-5 (Version None)
Quarter: 2009Q3

REPORT INFORMATION
  Report Type: 
  Country: None (occurrence: None)
  Receive Date: 20090925
  Receipt Date: 20090921
  Transmission Date: 20100115
  Serious: Yes (Death, Other)
  Sender: FDA-Public Use
  Company Number: PHEH2009US10260

PATIENT
  Sex: Male

DRUGS (7)
  1. EXJADE [Suspect]
     Indication: IRON OVERLOAD
     Dosage: 3 TABLETS EVERY OTHER DAY
     Route: 048
     Dates: start: 20090101
  2. PHENYTOIN [Concomitant]
     Indication: CONVULSION
     Dosage: 100 MG, BID
     Route: 048
  3. FENTANYL TRANSDERMAL SYSTEM [Concomitant]
     Dosage: 50 MCG, Q72H
     Route: 062
  4. DILAUDID [Concomitant]
     Indication: PAIN
     Dosage: 2 MG, Q4H PRN
     Route: 048
  5. THALIDOMIDE [Concomitant]
     Indication: MULTIPLE MYELOMA
     Dosage: 100 MG, UNK
     Route: 048
  6. GABAPENTIN [Concomitant]
     Indication: NEUROPATHY PERIPHERAL
     Dosage: 400 UNK, QID
     Route: 048
  7. LEVOTHYROXINE SODIUM [Concomitant]
     Indication: HYPOTHYROIDISM
     Dosage: 50 MCG, UNK

REACTIONS (5)
  - MULTIPLE MYELOMA [None]
  - MYELOFIBROSIS [None]
  - PAIN [None]
  - RENAL FAILURE CHRONIC [None]
  - SHOCK HYPOGLYCAEMIC [None]
